FAERS Safety Report 26110209 (Version 1)
Quarter: 2025Q4

REPORT INFORMATION
  Report Type: Spontaneous
  Country: EU (occurrence: EU)
  Receive Date: 20251202
  Receipt Date: 20251202
  Transmission Date: 20260117
  Serious: Yes (Life-Threatening, Hospitalization)
  Sender: ACCORD
  Company Number: EU-Accord-514822

PATIENT
  Age: 69 Year
  Sex: Male
  Weight: 57.0 kg

DRUGS (15)
  1. OXALIPLATIN [Suspect]
     Active Substance: OXALIPLATIN
     Indication: Oesophageal adenocarcinoma
     Dosage: 210.6 MILLIGRAM, Q3W, IV DRIP
     Route: 042
     Dates: start: 20251022, end: 20251112
  2. TRASTUZUMAB [Suspect]
     Active Substance: TRASTUZUMAB
     Indication: Oesophageal adenocarcinoma
     Dosage: STRENGTH: 150 MILLIGRAM?334.8 MILLIGRAM, Q3W, IV DRIP
     Route: 042
     Dates: start: 20251022
  3. OXALIPLATIN [Suspect]
     Active Substance: OXALIPLATIN
     Indication: Oesophageal adenocarcinoma
     Dosage: 210.6 MILLIGRAM, Q3W; IV DRIP
     Route: 042
     Dates: start: 20251022, end: 20251112
  4. CAPECITABINE [Concomitant]
     Active Substance: CAPECITABINE
     Indication: Oesophageal adenocarcinoma
     Dosage: STRENGTH: 500 MG, 120 TABLETS?1000 MG/M2, TWICE DAILY, DAY 1 TO DAY 14 OF EACH CYCLE
     Route: 048
     Dates: start: 20251022
  5. INSULIN NOS [Concomitant]
     Active Substance: INSULIN NOS
     Indication: Type 2 diabetes mellitus
     Dosage: ONCE DAILY
     Route: 058
  6. PIOGLITAZONE [Concomitant]
     Active Substance: PIOGLITAZONE
     Indication: Type 2 diabetes mellitus
     Dosage: ONCE DAILY
     Route: 048
  7. METFORMIN [Concomitant]
     Active Substance: METFORMIN HYDROCHLORIDE
     Indication: Type 2 diabetes mellitus
     Dosage: TWICE DAILY
     Route: 048
  8. SITAGLIPTIN [Concomitant]
     Active Substance: SITAGLIPTIN
     Indication: Type 2 diabetes mellitus
     Dosage: ONCE DAILY
     Route: 048
  9. SERTRALINE [Concomitant]
     Active Substance: SERTRALINE HYDROCHLORIDE
     Dosage: ONCE DAILY
     Route: 048
  10. LORAZEPAM [Concomitant]
     Active Substance: LORAZEPAM
     Dosage: ONCE DAILY
     Route: 048
  11. ATORVASTATIN [Concomitant]
     Active Substance: ATORVASTATIN
     Indication: Dyslipidaemia
     Dosage: ONCE DAILY
     Route: 048
  12. EZETIMIBE [Concomitant]
     Active Substance: EZETIMIBE
     Indication: Dyslipidaemia
     Dosage: ONCE DAILY
     Route: 048
  13. OMEPRAZOLE [Concomitant]
     Active Substance: OMEPRAZOLE
     Dosage: 20 MG, TWICE DAILY
     Route: 048
  14. GRANISETRON [Concomitant]
     Active Substance: GRANISETRON
     Indication: Chemotherapy side effect prophylaxis
     Dosage: ONCE
     Route: 042
     Dates: start: 20251112, end: 20251112
  15. DEXAMETHASONE [Concomitant]
     Active Substance: DEXAMETHASONE
     Indication: Chemotherapy side effect prophylaxis
     Dosage: ONCE
     Route: 042
     Dates: start: 20251112, end: 20251112

REACTIONS (4)
  - Infusion related reaction [Recovered/Resolved]
  - Hypotension [Recovered/Resolved]
  - Confusional state [Recovered/Resolved]
  - Oxygen saturation decreased [Recovered/Resolved]

NARRATIVE: CASE EVENT DATE: 20251112
